FAERS Safety Report 9870350 (Version 1)
Quarter: 2014Q1

REPORT INFORMATION
  Report Type: Spontaneous
  Country: GR (occurrence: GR)
  Receive Date: 20140205
  Receipt Date: 20140205
  Transmission Date: 20141002
  Serious: Yes (Hospitalization)
  Sender: FDA-Public Use
  Company Number: GR-TEVA-459726ISR

PATIENT
  Age: 4 Year
  Sex: Male

DRUGS (5)
  1. DOXORUBICIN NOS [Suspect]
     Indication: NON-HODGKIN^S LYMPHOMA STAGE III
  2. METHOTREXATE [Suspect]
     Indication: NON-HODGKIN^S LYMPHOMA STAGE III
  3. VINCRISTINE [Suspect]
     Indication: NON-HODGKIN^S LYMPHOMA STAGE III
  4. CYCLOPHOSPHAMIDE [Suspect]
     Indication: NON-HODGKIN^S LYMPHOMA STAGE III
  5. PREDNISONE [Suspect]
     Indication: NON-HODGKIN^S LYMPHOMA STAGE III

REACTIONS (1)
  - Small intestinal obstruction [Recovered/Resolved]
